FAERS Safety Report 15358219 (Version 1)
Quarter: 2018Q3

REPORT INFORMATION
  Report Type: Spontaneous
  Country: US (occurrence: US)
  Receive Date: 20180906
  Receipt Date: 20180906
  Transmission Date: 20181010
  Serious: No
  Sender: FDA-Public Use
  Company Number: US-PERRIGO-18US005797

PATIENT
  Age: 29 Year
  Sex: Female
  Weight: 72.56 kg

DRUGS (3)
  1. MINOXIDIL. [Suspect]
     Active Substance: MINOXIDIL
     Indication: ALOPECIA
     Dosage: 1 ML, BID
     Route: 061
     Dates: start: 201802, end: 201804
  2. ANTIFUNGALS [Concomitant]
     Active Substance: UNSPECIFIED INGREDIENT
     Indication: TINEA INFECTION
     Dosage: UNK
     Route: 048
     Dates: start: 201804
  3. MINOXIDIL. [Suspect]
     Active Substance: MINOXIDIL
     Dosage: 1 ML, QD
     Route: 061
     Dates: start: 201804, end: 20180526

REACTIONS (3)
  - Condition aggravated [Not Recovered/Not Resolved]
  - Off label use [Recovered/Resolved]
  - Product administered at inappropriate site [Recovered/Resolved]

NARRATIVE: CASE EVENT DATE: 201802
